FAERS Safety Report 13524980 (Version 1)
Quarter: 2017Q2

REPORT INFORMATION
  Report Type: Spontaneous
  Country: US (occurrence: US)
  Receive Date: 20170508
  Receipt Date: 20170508
  Transmission Date: 20170830
  Serious: Yes (Other)
  Sender: FDA-Public Use
  Company Number: US-ROCHE-1102899

PATIENT
  Sex: Female

DRUGS (3)
  1. AVASTIN [Suspect]
     Active Substance: BEVACIZUMAB
     Indication: COLON CANCER
     Route: 065
  2. LEUCOVORIN. [Concomitant]
     Active Substance: LEUCOVORIN
  3. 5-FLUOROURACIL [Concomitant]
     Active Substance: FLUOROURACIL

REACTIONS (2)
  - Metastasis [Unknown]
  - Abdominal pain [Unknown]

NARRATIVE: CASE EVENT DATE: 2003
